FAERS Safety Report 5593987-5 (Version None)
Quarter: 2007Q4

REPORT INFORMATION
  Report Type: 
  Country: None (occurrence: None)
  Receive Date: 20071218
  Receipt Date: 20070503
  Transmission Date: 20080405
  Serious: Yes (Other)
  Sender: FDA-Public Use
  Company Number: 2007035986

PATIENT
  Age: 55 Year
  Sex: Male
  Weight: 82.6 kg

DRUGS (1)
  1. BEXTRA [Suspect]
     Indication: BACK INJURY
     Dosage: (20 MG,ONE TO TWO TIMES DAILY)
     Dates: start: 20020327

REACTIONS (3)
  - ANXIETY [None]
  - CARDIAC FAILURE CONGESTIVE [None]
  - EMBOLISM [None]
